FAERS Safety Report 5041510-6 (Version None)
Quarter: 2006Q2

REPORT INFORMATION
  Report Type: 
  Country: None (occurrence: None)
  Receive Date: 20060627
  Receipt Date: 20060619
  Transmission Date: 20061013
  Serious: Yes (Death)
  Sender: FDA-Public Use
  Company Number: 06-0065SU

PATIENT
  Age: 65 Year
  Sex: Female

DRUGS (2)
  1. SULAR [Suspect]
     Dosage: PO
     Route: 048
  2. AMIODARONE HCL [Suspect]
     Dosage: 200MG, BID, PO
     Route: 048

REACTIONS (5)
  - FACE OEDEMA [None]
  - HEPATIC CONGESTION [None]
  - MYOCARDIAL INFARCTION [None]
  - OEDEMA PERIPHERAL [None]
  - PULMONARY CONGESTION [None]
